FAERS Safety Report 18706511 (Version 1)
Quarter: 2021Q1

REPORT INFORMATION
  Report Type: Spontaneous
  Country: US (occurrence: US)
  Receive Date: 20210106
  Receipt Date: 20210106
  Transmission Date: 20210419
  Serious: No
  Sender: FDA-Public Use
  Company Number: None

PATIENT
  Age: 63 Day
  Sex: Female
  Weight: 70.2 kg

DRUGS (26)
  1. OLOPATADINE. [Concomitant]
     Active Substance: OLOPATADINE
  2. CHANTIX [Concomitant]
     Active Substance: VARENICLINE TARTRATE
  3. VIT D [Concomitant]
     Active Substance: VITAMIN D NOS
  4. CHIA SEED [Concomitant]
  5. LACTULOSE 10GM/15ML SOLUTION [Suspect]
     Active Substance: LACTULOSE
     Indication: CONSTIPATION
     Dosage: ?          QUANTITY:3 TABLESPOON(S);?
     Route: 048
     Dates: start: 20201209, end: 20201222
  6. ROPINIROLE. [Concomitant]
     Active Substance: ROPINIROLE
  7. DICLOFENAC SODIUM. [Concomitant]
     Active Substance: DICLOFENAC SODIUM
  8. VITAMIN E [Concomitant]
     Active Substance: .ALPHA.-TOCOPHEROL
  9. CLONAZEPAM. [Concomitant]
     Active Substance: CLONAZEPAM
  10. DIAZEPAM. [Concomitant]
     Active Substance: DIAZEPAM
  11. FISH OIL W/OMEGA?3 [Concomitant]
  12. L?LYSINE AMINO ACID [Concomitant]
  13. CITRACAL CALCIUM W VIT.D [Concomitant]
  14. NIGHT EYE DROPS [Concomitant]
  15. MUL B12 [Concomitant]
  16. FLAX GOUND [Concomitant]
  17. ASPRIN 81MG [Concomitant]
  18. CETIRIZEIZE [Concomitant]
  19. PANTOPRAZOLE [Concomitant]
     Active Substance: PANTOPRAZOLE
  20. ATORVASTATIN [Concomitant]
     Active Substance: ATORVASTATIN
  21. BISACODYL. [Concomitant]
     Active Substance: BISACODYL
  22. VIT [Concomitant]
  23. VITAMIN B12 [Concomitant]
     Active Substance: CYANOCOBALAMIN
  24. STOOL SOFTNER [Concomitant]
  25. GAX?X EXTRA STRENGTH [Concomitant]
  26. ASPRIN 325 [Concomitant]

REACTIONS (10)
  - Nausea [None]
  - Product intolerance [None]
  - Somnolence [None]
  - Asthenia [None]
  - Diarrhoea [None]
  - Headache [None]
  - Decreased appetite [None]
  - Fatigue [None]
  - Haematochezia [None]
  - Disturbance in attention [None]

NARRATIVE: CASE EVENT DATE: 20201209
